FAERS Safety Report 5219393-0 (Version None)
Quarter: 2007Q1

REPORT INFORMATION
  Report Type: 
  Country: None (occurrence: None)
  Receive Date: 20070125
  Receipt Date: 20060621
  Transmission Date: 20070707
  Serious: No
  Sender: FDA-Public Use
  Company Number: US-BRISTOL-MYERS SQUIBB COMPANY-13419429

PATIENT
  Age: 38 Year
  Sex: Female
  Weight: 78 kg

DRUGS (8)
  1. IFEX [Suspect]
     Indication: SARCOMA
     Route: 042
     Dates: start: 20060619
  2. MESNA [Suspect]
     Indication: SARCOMA
     Route: 042
     Dates: start: 20060619
  3. DEXAMETHASONE [Concomitant]
  4. KYTRIL [Concomitant]
  5. GLUCOTROL [Concomitant]
  6. DOXORUBICIN HCL [Concomitant]
  7. DACARBAZINE [Concomitant]
  8. PAIN MEDICATIONS [Concomitant]

REACTIONS (1)
  - ACCIDENTAL EXPOSURE [None]
